FAERS Safety Report 15842905 (Version 1)
Quarter: 2019Q1

REPORT INFORMATION
  Report Type: Spontaneous
  Country: HR (occurrence: HR)
  Receive Date: 20190118
  Receipt Date: 20190118
  Transmission Date: 20190417
  Serious: Yes (Other)
  Sender: FDA-Public Use
  Company Number: HR-TEVA-2019-HR-1001655

PATIENT
  Sex: Female

DRUGS (2)
  1. OKSAZEPAM [Suspect]
     Active Substance: OXAZEPAM
     Route: 048
     Dates: start: 20181018, end: 20181018
  2. TRAMAL [Suspect]
     Active Substance: TRAMADOL
     Dosage: 4 GRAM DAILY;
     Route: 048
     Dates: start: 20181018, end: 20181018

REACTIONS (1)
  - Suicide attempt [Unknown]

NARRATIVE: CASE EVENT DATE: 20181018
